FAERS Safety Report 13449315 (Version 3)
Quarter: 2018Q3

REPORT INFORMATION
  Report Type: Report from Study
  Country: US (occurrence: US)
  Receive Date: 20170417
  Receipt Date: 20180920
  Transmission Date: 20181010
  Serious: Yes (Other)
  Sender: FDA-Public Use
  Company Number: PHEH2017US011102

PATIENT
  Age: 54 Year
  Sex: Male

DRUGS (1)
  1. COSENTYX [Suspect]
     Active Substance: SECUKINUMAB
     Indication: PSORIATIC ARTHROPATHY
     Dosage: 300 MG, QMO
     Route: 058
     Dates: start: 20170308

REACTIONS (13)
  - Psoriatic arthropathy [Unknown]
  - Drug ineffective [Unknown]
  - Scar [Unknown]
  - Hypoaesthesia [Unknown]
  - Musculoskeletal stiffness [Unknown]
  - Pain [Unknown]
  - Dysphagia [Unknown]
  - Psoriasis [Unknown]
  - Impaired healing [Unknown]
  - Skin haemorrhage [Unknown]
  - Wound [Unknown]
  - Myalgia [Unknown]
  - Eczema [Unknown]

NARRATIVE: CASE EVENT DATE: 20170309
